FAERS Safety Report 6627136-9 (Version None)
Quarter: 2010Q1

REPORT INFORMATION
  Report Type: 
  Country: None (occurrence: None)
  Receive Date: 20100311
  Receipt Date: 20091008
  Transmission Date: 20100710
  Serious: No
  Sender: FDA-Public Use
  Company Number: A0810908A

PATIENT
  Age: 61 Year
  Sex: Female

DRUGS (2)
  1. NICORETTE [Suspect]
  2. NICORETTE (MINT) [Suspect]

REACTIONS (6)
  - CONDITION AGGRAVATED [None]
  - CYSTITIS INTERSTITIAL [None]
  - DRUG ADMINISTRATION ERROR [None]
  - DYSURIA [None]
  - URINARY TRACT INFECTION [None]
  - VULVOVAGINAL ERYTHEMA [None]
